FAERS Safety Report 6398374-8 (Version None)
Quarter: 2009Q4

REPORT INFORMATION
  Report Type: 
  Country: None (occurrence: None)
  Receive Date: 20091013
  Receipt Date: 20091006
  Transmission Date: 20100525
  Serious: No
  Sender: FDA-Public Use
  Company Number: US-B.I. PHARMACEUTICALS,INC./RIDGEFIELD-2009-BP-10668BP

PATIENT
  Age: 67 Year
  Sex: Male
  Weight: 74.8 kg

DRUGS (1)
  1. FLOMAX [Suspect]
     Dosage: 0.4 MG
     Dates: start: 20090902, end: 20090909

REACTIONS (2)
  - DIZZINESS [None]
  - NAUSEA [None]
